FAERS Safety Report 18498973 (Version 1)
Quarter: 2020Q4

REPORT INFORMATION
  Report Type: Report from Study
  Country: RO (occurrence: RO)
  Receive Date: 20201112
  Receipt Date: 20201112
  Transmission Date: 20210114
  Serious: Yes (Death)
  Sender: FDA-Public Use
  Company Number: RO-TAKEDA-2020TUS049233

PATIENT
  Age: 68 Year
  Sex: Male

DRUGS (15)
  1. BETALOK [Concomitant]
     Active Substance: METOPROLOL SUCCINATE
     Indication: TENSION
     Dosage: UNK UNK, QD
     Route: 065
  2. PRESTARIUM [PERINDOPRIL] [Concomitant]
     Indication: TENSION
     Dosage: UNK UNK, QD
     Route: 065
  3. MILURIT [Concomitant]
     Active Substance: ALLOPURINOL
     Indication: PLASMA CELL MYELOMA
     Dosage: UNK UNK, QD
     Route: 065
  4. THIOSSEN [Concomitant]
     Active Substance: .ALPHA.-LIPOIC ACID
     Indication: PROPHYLAXIS
     Dosage: UNK
     Route: 065
  5. LENALIDOMIDE [Suspect]
     Active Substance: LENALIDOMIDE
     Indication: PLASMA CELL MYELOMA
     Dosage: 25 MILLIGRAM
     Route: 065
     Dates: start: 20201010, end: 20201105
  6. MAGNE B6 FAST [Concomitant]
     Indication: PRODUCT USED FOR UNKNOWN INDICATION
     Dosage: UNK UNK, QD
     Route: 065
  7. IXAZOMIB [Suspect]
     Active Substance: IXAZOMIB
     Indication: PLASMA CELL MYELOMA
     Dosage: 4 MILLIGRAM
     Route: 048
     Dates: start: 20201010, end: 20201105
  8. ELIQUIS [Concomitant]
     Active Substance: APIXABAN
     Indication: PLASMA CELL MYELOMA
     Dosage: UNK UNK, QD
     Route: 065
  9. VITAMIN B12 [Concomitant]
     Active Substance: CYANOCOBALAMIN
     Indication: PRODUCT USED FOR UNKNOWN INDICATION
     Dosage: UNK
     Route: 065
  10. OMERAN [Concomitant]
     Indication: PROPHYLAXIS
     Dosage: UNK
     Route: 065
  11. ACYCLOVIR ABBOTT VIAL [Concomitant]
     Indication: PLASMA CELL MYELOMA
     Dosage: UNK UNK, QD
     Route: 065
  12. ENTECAVIR. [Concomitant]
     Active Substance: ENTECAVIR
     Indication: HEPATITIS B
     Dosage: UNK UNK, QD
     Route: 065
  13. DEXAMETHASONE. [Suspect]
     Active Substance: DEXAMETHASONE
     Indication: PLASMA CELL MYELOMA
     Dosage: 20 MILLIGRAM
     Route: 065
     Dates: start: 20201010, end: 20201105
  14. MILGAMMA MONO [Concomitant]
     Indication: PRODUCT USED FOR UNKNOWN INDICATION
     Dosage: UNK UNK, QD
     Route: 065
  15. FOLIC ACID. [Concomitant]
     Active Substance: FOLIC ACID
     Indication: PROPHYLAXIS
     Dosage: UNK
     Route: 065

REACTIONS (1)
  - COVID-19 [Fatal]

NARRATIVE: CASE EVENT DATE: 20201030
